FAERS Safety Report 6389722-3 (Version None)
Quarter: 2009Q4

REPORT INFORMATION
  Report Type: 
  Country: None (occurrence: None)
  Receive Date: 20091002
  Receipt Date: 20091002
  Transmission Date: 20100525
  Serious: Yes (Hospitalization)
  Sender: FDA-Public Use
  Company Number: None

PATIENT
  Sex: Female
  Weight: 62.1 kg

DRUGS (1)
  1. METHIMAZOLE 10 MG PAR PHARMACEUTICAL [Suspect]
     Indication: HYPERTHYROIDISM
     Dosage: 30MG DAILY PO
     Route: 048
     Dates: start: 20090829, end: 20090926

REACTIONS (2)
  - NEUTROPENIA [None]
  - PYREXIA [None]
